FAERS Safety Report 5302876-2 (Version None)
Quarter: 2007Q2

REPORT INFORMATION
  Report Type: 
  Country: None (occurrence: None)
  Receive Date: 20070420
  Receipt Date: 20070412
  Transmission Date: 20071010
  Serious: Yes (Hospitalization)
  Sender: FDA-Public Use
  Company Number: FR-NOVOPROD-262714

PATIENT
  Age: 60 Year
  Sex: Male
  Weight: 65 kg

DRUGS (6)
  1. ACTRAPID HM PENFILL [Suspect]
     Indication: DIABETES MELLITUS
     Route: 058
     Dates: start: 20060915
  2. AUGMENTIN                          /00852501/ [Concomitant]
     Indication: DRUG USE FOR UNKNOWN INDICATION
     Dosage: 6 G, QD
     Route: 042
     Dates: start: 20070306, end: 20070312
  3. TAVANIC [Concomitant]
     Indication: DRUG USE FOR UNKNOWN INDICATION
     Dates: start: 20070313
  4. CORDARONE [Concomitant]
     Indication: DRUG USE FOR UNKNOWN INDICATION
     Dosage: 200 MG, QD
     Route: 048
  5. OGAST [Concomitant]
     Indication: DRUG USE FOR UNKNOWN INDICATION
     Dosage: 30 MG, QD
     Route: 048
  6. ESIDRIX [Concomitant]
     Dosage: 12.5 MG, QD
     Route: 048

REACTIONS (1)
  - THROMBOCYTOPENIA [None]
